FAERS Safety Report 21601390 (Version 1)
Quarter: 2022Q4

REPORT INFORMATION
  Report Type: Report from Study
  Country: IL (occurrence: IL)
  Receive Date: 20221116
  Receipt Date: 20221116
  Transmission Date: 20230113
  Serious: Yes (Other)
  Sender: FDA-Public Use
  Company Number: IL-SHIRE-IL202023139

PATIENT
  Age: 64 Year
  Sex: Female

DRUGS (3)
  1. VELAGLUCERASE ALFA [Suspect]
     Active Substance: VELAGLUCERASE ALFA
     Indication: Gaucher^s disease
     Dosage: 5 DOSAGE FORM, Q2WEEKS
     Route: 042
     Dates: start: 20091201
  2. VELAGLUCERASE ALFA [Suspect]
     Active Substance: VELAGLUCERASE ALFA
     Dosage: 5 DOSAGE FORM, Q2WEEKS
     Route: 042
     Dates: start: 20091201
  3. CEREZYME [Concomitant]
     Active Substance: IMIGLUCERASE
     Indication: Product used for unknown indication

REACTIONS (3)
  - Upper limb fracture [Unknown]
  - Ankle fracture [Not Recovered/Not Resolved]
  - Fall [Unknown]

NARRATIVE: CASE EVENT DATE: 20221031
